FAERS Safety Report 21725192 (Version 1)
Quarter: 2022Q4

REPORT INFORMATION
  Report Type: Spontaneous
  Country: US (occurrence: None)
  Receive Date: 20221214
  Receipt Date: 20221214
  Transmission Date: 20230113
  Serious: Yes (Hospitalization)
  Sender: FDA-Public Use
  Company Number: US-ROCHE-3239905

PATIENT
  Age: 44 Year
  Sex: Female

DRUGS (18)
  1. KLONOPIN [Suspect]
     Active Substance: CLONAZEPAM
     Indication: Anxiety
     Route: 065
     Dates: end: 20220217
  2. BOTOX [Suspect]
     Active Substance: ONABOTULINUMTOXINA
     Indication: Migraine prophylaxis
     Dosage: SINGE
     Route: 065
     Dates: start: 202112, end: 202112
  3. QULIPTA [Suspect]
     Active Substance: ATOGEPANT
     Indication: Headache
     Route: 065
     Dates: end: 20220217
  4. LINZESS [Suspect]
     Active Substance: LINACLOTIDE
     Indication: Constipation
     Route: 065
     Dates: end: 20220217
  5. ADDERALL [Suspect]
     Active Substance: AMPHETAMINE ASPARTATE\AMPHETAMINE SULFATE\DEXTROAMPHETAMINE SACCHARATE\DEXTROAMPHETAMINE SULFATE
     Indication: Attention deficit hyperactivity disorder
     Route: 065
     Dates: end: 20220217
  6. PAROXETINE [Suspect]
     Active Substance: PAROXETINE
     Indication: Depression
     Route: 065
     Dates: end: 20220217
  7. FENTANYL [Suspect]
     Active Substance: FENTANYL
     Indication: Vulvovaginal mycotic infection
     Route: 065
     Dates: start: 20211228, end: 20211228
  8. FENTANYL [Suspect]
     Active Substance: FENTANYL
     Indication: Breast reconstruction
  9. FENTANYL [Suspect]
     Active Substance: FENTANYL
     Indication: Breast prosthesis user
  10. SUCCINYLCHOLINE [Suspect]
     Active Substance: SUCCINYLCHOLINE
     Indication: Breast prosthesis user
     Route: 065
     Dates: start: 20211228, end: 20211228
  11. SUCCINYLCHOLINE [Suspect]
     Active Substance: SUCCINYLCHOLINE
     Indication: Breast reconstruction
  12. ROCURONIUM [Suspect]
     Active Substance: ROCURONIUM BROMIDE
     Indication: Breast prosthesis user
     Route: 065
     Dates: start: 20211228, end: 20211228
  13. ROCURONIUM [Suspect]
     Active Substance: ROCURONIUM BROMIDE
     Indication: Breast reconstruction
  14. CEFAZOLIN [Suspect]
     Active Substance: CEFAZOLIN
     Indication: Product used for unknown indication
     Route: 065
  15. LACTULOSE [Suspect]
     Active Substance: LACTULOSE
     Indication: Constipation
     Route: 065
     Dates: end: 20220217
  16. MIRALAX [Suspect]
     Active Substance: POLYETHYLENE GLYCOL 3350
     Indication: Constipation
     Route: 065
     Dates: end: 20220217
  17. FLUCONAZOLE [Suspect]
     Active Substance: FLUCONAZOLE
     Indication: Product used for unknown indication
     Route: 065
     Dates: start: 20220114, end: 20220114
  18. TRAZODONE [Suspect]
     Active Substance: TRAZODONE HYDROCHLORIDE
     Indication: Anxiety
     Route: 065
     Dates: end: 20220217

REACTIONS (10)
  - Multiple organ dysfunction syndrome [Unknown]
  - Hepatitis acute [Not Recovered/Not Resolved]
  - Constipation [Not Recovered/Not Resolved]
  - Vulvovaginal mycotic infection [Unknown]
  - Hepatic encephalopathy [Not Recovered/Not Resolved]
  - Fatigue [Not Recovered/Not Resolved]
  - Jaundice [Not Recovered/Not Resolved]
  - Breast reconstruction [Unknown]
  - Breast prosthesis removal [Unknown]
  - Breast pain [Unknown]

NARRATIVE: CASE EVENT DATE: 20220104
